FAERS Safety Report 24763686 (Version 1)
Quarter: 2024Q4

REPORT INFORMATION
  Report Type: Spontaneous
  Country: US (occurrence: US)
  Receive Date: 20241223
  Receipt Date: 20241223
  Transmission Date: 20250115
  Serious: No
  Sender: NOVARTIS
  Company Number: US-002147023-NVSC2024US238798

PATIENT
  Age: 70 Year
  Sex: Male
  Weight: 104.4 kg

DRUGS (2)
  1. GLEEVEC [Suspect]
     Active Substance: IMATINIB MESYLATE
     Indication: Chronic myeloid leukaemia
     Dosage: UNK
     Route: 065
  2. BOSULIF [Suspect]
     Active Substance: BOSUTINIB MONOHYDRATE
     Indication: Chronic myeloid leukaemia
     Dosage: 100 MG, QID
     Route: 048
     Dates: start: 20240730

REACTIONS (3)
  - Gastrointestinal toxicity [Unknown]
  - Drug intolerance [Unknown]
  - Back pain [Unknown]
